FAERS Safety Report 19316673 (Version 1)
Quarter: 2021Q2

REPORT INFORMATION
  Report Type: Spontaneous
  Country: DE (occurrence: RU)
  Receive Date: 20210527
  Receipt Date: 20210527
  Transmission Date: 20210717
  Serious: Yes (Other)
  Sender: FDA-Public Use
  Company Number: RU-ELI_LILLY_AND_COMPANY-RU202105011669

PATIENT
  Age: 69 Year
  Sex: Male

DRUGS (6)
  1. ERBITUX [Suspect]
     Active Substance: CETUXIMAB
     Dosage: 500 MG/M2, 2/M (26 COURSES OF ERBITUX)
     Dates: start: 20200313
  2. OXALIPLATIN. [Concomitant]
     Active Substance: OXALIPLATIN
     Indication: COLORECTAL CANCER METASTATIC
     Dosage: UNK
     Dates: start: 20160324, end: 20161006
  3. ERBITUX [Suspect]
     Active Substance: CETUXIMAB
     Indication: COLORECTAL CANCER METASTATIC
     Dosage: 500 MG/M2, 2/M (8 COURSES OF CHEMOTHERAPY)
     Route: 065
     Dates: start: 20191003, end: 20200123
  4. OXALIPLATIN. [Concomitant]
     Active Substance: OXALIPLATIN
     Dosage: 8 COURSES OF CHEMOTHERAPY
     Dates: start: 20191003, end: 20200123
  5. 5?FLUOROURACIL [FLUOROURACIL] [Concomitant]
     Active Substance: FLUOROURACIL
     Indication: COLORECTAL CANCER METASTATIC
     Dosage: 8 COURSES OF CHEMOTHERAPY
     Dates: start: 20191003, end: 20200123
  6. CALCIUM FOLINATE [Concomitant]
     Active Substance: LEUCOVORIN CALCIUM
     Indication: COLORECTAL CANCER METASTATIC
     Dosage: 8 COURSES OF CHEMOTHERAPY
     Dates: start: 20191003, end: 20200123

REACTIONS (3)
  - Thrombocytopenia [Unknown]
  - Polyneuropathy [Unknown]
  - Off label use [Unknown]
